FAERS Safety Report 8935150 (Version 1)
Quarter: 2012Q4

REPORT INFORMATION
  Report Type: 
  Country: JP (occurrence: JP)
  Receive Date: 20121129
  Receipt Date: 20121129
  Transmission Date: 20130627
  Serious: Yes (Death)
  Sender: FDA-Public Use
  Company Number: JP-009507513-1211JPN009868

PATIENT
  Age: 6 Year
  Sex: Female

DRUGS (1)
  1. TEMODAL [Suspect]
     Indication: BRAIN STEM GLIOMA
     Dosage: UNK, qd

REACTIONS (1)
  - Intracranial tumour haemorrhage [Fatal]
